FAERS Safety Report 16907819 (Version 1)
Quarter: 2019Q4

REPORT INFORMATION
  Report Type: Report from Study
  Country: US (occurrence: US)
  Receive Date: 20191011
  Receipt Date: 20191011
  Transmission Date: 20200122
  Serious: Yes (Other)
  Sender: FDA-Public Use
  Company Number: US-ROCHE-2427298

PATIENT
  Age: 8 Year
  Sex: Female
  Weight: 31.7 kg

DRUGS (5)
  1. INSULIN [Concomitant]
     Active Substance: INSULIN NOS
     Route: 058
  2. SYNTHROID [Concomitant]
     Active Substance: LEVOTHYROXINE SODIUM
     Route: 048
  3. NUTROPIN AQ [Suspect]
     Active Substance: SOMATROPIN
     Indication: HYPOPITUITARISM
     Dosage: 4 PENS/ 30 DAYS
     Route: 058
  4. SOLU-CORTEF [Concomitant]
     Active Substance: HYDROCORTISONE SODIUM SUCCINATE
     Route: 065
  5. CORTEF [Concomitant]
     Active Substance: HYDROCORTISONE
     Route: 048

REACTIONS (3)
  - Enuresis [Unknown]
  - Deafness [Unknown]
  - Snoring [Unknown]
